FAERS Safety Report 8318374 (Version 3)
Quarter: 2012Q4

REPORT INFORMATION
  Report Type: 
  Country: ES (occurrence: ES)
  Receive Date: 20120103
  Receipt Date: 20121129
  Transmission Date: 20130627
  Serious: Yes (Hospitalization)
  Sender: FDA-Public Use
  Company Number: ES-JNJFOC-20111210751

PATIENT
  Age: 16 None
  Sex: Male

DRUGS (3)
  1. XEPLION [Suspect]
     Indication: CONDUCT DISORDER
     Route: 030
     Dates: start: 20120117
  2. XEPLION [Suspect]
     Indication: CONDUCT DISORDER
     Route: 030
     Dates: start: 20111217, end: 20111217
  3. OXCARBAZEPINE [Concomitant]
     Indication: CONDUCT DISORDER
     Route: 065

REACTIONS (6)
  - Injection site abscess [Recovered/Resolved]
  - Pyrexia [Recovered/Resolved]
  - Injection site pain [Unknown]
  - Injection site induration [Recovered/Resolved]
  - Drug administered to patient of inappropriate age [Recovered/Resolved]
  - Injection site erythema [Unknown]
